FAERS Safety Report 4514901-7 (Version None)
Quarter: 2004Q4

REPORT INFORMATION
  Report Type: 
  Country: None (occurrence: None)
  Receive Date: 20041126
  Receipt Date: 20041115
  Transmission Date: 20050328
  Serious: Yes (Other)
  Sender: FDA-Public Use
  Company Number: 2004EU002052

PATIENT

DRUGS (2)
  1. PROGRAF [Suspect]
     Indication: LIVER TRANSPLANT
     Dosage: 2.00 MG, D;  1.00 MGG
     Dates: start: 19950101
  2. IMATINIB MESILATE (IMATINIB MESILATE) [Suspect]
     Dosage: 400.00 MG, D

REACTIONS (5)
  - DRUG INTERACTION [None]
  - DRUG LEVEL INCREASED [None]
  - METASTASES TO ADRENALS [None]
  - METASTASES TO LIVER [None]
  - RECURRENT CANCER [None]
